FAERS Safety Report 12651410 (Version 1)
Quarter: 2016Q3

REPORT INFORMATION
  Report Type: Spontaneous
  Country: US (occurrence: None)
  Receive Date: 20160812
  Receipt Date: 20160812
  Transmission Date: 20161109
  Serious: Yes (Hospitalization)
  Sender: FDA-Public Use
  Company Number: None

PATIENT
  Age: 50 Year
  Sex: Male
  Weight: 81 kg

DRUGS (1)
  1. DARATUMUMAB [Suspect]
     Active Substance: DARATUMUMAB
     Indication: PLASMA CELL MYELOMA
     Dosage: INTRAVENOUS (NOT OTHERWISE SPECIFIED)
     Route: 042
     Dates: start: 20160229, end: 20160809

REACTIONS (15)
  - Sinus congestion [None]
  - Pulmonary congestion [None]
  - Abdominal pain upper [None]
  - Vomiting [None]
  - Dizziness [None]
  - Syncope [None]
  - Pallor [None]
  - Hyperhidrosis [None]
  - Pancreatitis [None]
  - Leukocytosis [None]
  - Throat irritation [None]
  - Chest pain [None]
  - Throat tightness [None]
  - Wheezing [None]
  - Dyspnoea [None]

NARRATIVE: CASE EVENT DATE: 20160809
